FAERS Safety Report 17120437 (Version 1)
Quarter: 2019Q4

REPORT INFORMATION
  Report Type: Spontaneous
  Country: US (occurrence: US)
  Receive Date: 20191206
  Receipt Date: 20191206
  Transmission Date: 20200122
  Serious: No
  Sender: FDA-Public Use
  Company Number: US-GW PHARMA-201911USGW4451

PATIENT

DRUGS (3)
  1. EPIDIOLEX [Suspect]
     Active Substance: CANNABIDIOL
     Dosage: 250 MILLIGRAM, BID
     Route: 048
     Dates: start: 2019, end: 2019
  2. EPIDIOLEX [Suspect]
     Active Substance: CANNABIDIOL
     Indication: SEIZURE
     Dosage: UNK
     Route: 048
     Dates: start: 20191028, end: 2019
  3. EPIDIOLEX [Suspect]
     Active Substance: CANNABIDIOL
     Dosage: 375 MILLIGRAM, QD (2.5 ML IN THE MORNING AND 1.25 ML IN EVENING)
     Route: 048
     Dates: start: 2019

REACTIONS (2)
  - Abdominal discomfort [Unknown]
  - Aura [Unknown]

NARRATIVE: CASE EVENT DATE: 2019
